FAERS Safety Report 18600982 (Version 2)
Quarter: 2020Q4

REPORT INFORMATION
  Report Type: Report from Study
  Country: DE (occurrence: DE)
  Receive Date: 20201210
  Receipt Date: 20201223
  Transmission Date: 20210114
  Serious: Yes (Hospitalization, Disabling)
  Sender: FDA-Public Use
  Company Number: DE-SA-2020SA329678

PATIENT

DRUGS (4)
  1. ISATUXIMAB [Suspect]
     Active Substance: ISATUXIMAB
     Dosage: UNK UNK, QCY
     Route: 042
     Dates: start: 20201124, end: 20201124
  2. POMALIDOMIDE. [Suspect]
     Active Substance: POMALIDOMIDE
     Indication: PLASMA CELL MYELOMA REFRACTORY
     Dosage: UNK
     Dates: start: 20201113, end: 20201201
  3. ISATUXIMAB [Suspect]
     Active Substance: ISATUXIMAB
     Indication: PLASMA CELL MYELOMA REFRACTORY
     Dosage: UNK UNK, QCY
     Route: 042
     Dates: start: 20201110, end: 20201110
  4. DEXAMETHASONE. [Suspect]
     Active Substance: DEXAMETHASONE
     Indication: PLASMA CELL MYELOMA REFRACTORY
     Dosage: UNK
     Dates: start: 20201110, end: 20201124

REACTIONS (3)
  - Urinary tract infection [Recovered/Resolved]
  - Pruritus [Recovered/Resolved]
  - Febrile neutropenia [Recovered/Resolved]

NARRATIVE: CASE EVENT DATE: 20201114
